FAERS Safety Report 11001292 (Version 1)
Quarter: 2015Q2

REPORT INFORMATION
  Report Type: Spontaneous
  Country: US (occurrence: US)
  Receive Date: 20150408
  Receipt Date: 20150408
  Transmission Date: 20150821
  Serious: No
  Sender: FDA-Public Use
  Company Number: US-SA-2015SA021940

PATIENT
  Age: 50 Year
  Sex: Female

DRUGS (2)
  1. FLONASE [Concomitant]
     Active Substance: FLUTICASONE PROPIONATE
     Route: 065
  2. ALLEGRA [Suspect]
     Active Substance: FEXOFENADINE HYDROCHLORIDE
     Indication: MULTIPLE ALLERGIES
     Dosage: START DATE 2 YEARS?DOSE:180MG 1-4 TIMES DAILY
     Route: 048

REACTIONS (5)
  - Extra dose administered [Unknown]
  - Drug ineffective [Unknown]
  - Blood heavy metal increased [Unknown]
  - Drug dose omission [Unknown]
  - Nasal congestion [Unknown]
